FAERS Safety Report 7539760-X (Version None)
Quarter: 2011Q2

REPORT INFORMATION
  Report Type: 
  Country: None (occurrence: None)
  Receive Date: 20110610
  Receipt Date: 20110531
  Transmission Date: 20111010
  Serious: Yes (Other)
  Sender: FDA-Public Use
  Company Number: PHFR2011GB03377

PATIENT
  Sex: Female

DRUGS (1)
  1. CLOZAPINE [Suspect]
     Indication: SCHIZOPHRENIA
     Dosage: 250 MG, QD
     Route: 048
     Dates: start: 20110416

REACTIONS (4)
  - EYE MOVEMENT DISORDER [None]
  - SALIVARY HYPERSECRETION [None]
  - SEDATION [None]
  - FACIAL PAIN [None]
